FAERS Safety Report 10343370 (Version 1)
Quarter: 2014Q3

REPORT INFORMATION
  Report Type: Spontaneous
  Country: US (occurrence: US)
  Receive Date: 20140725
  Receipt Date: 20140725
  Transmission Date: 20150326
  Serious: Yes (Hospitalization, Other)
  Sender: FDA-Public Use
  Company Number: US-TARO-2014TAR00159

PATIENT
  Sex: Female
  Weight: 78.5 kg

DRUGS (2)
  1. WARFARIN SODIUM TABLETS USP 2MG [Suspect]
     Active Substance: WARFARIN SODIUM
     Indication: DEEP VEIN THROMBOSIS
     Dosage: UNK
     Route: 048
     Dates: start: 1993
  2. WARFARIN SODIUM TABLETS USP 5MG [Suspect]
     Active Substance: WARFARIN SODIUM
     Indication: DEEP VEIN THROMBOSIS
     Dosage: UNK, 1X/DAY
     Route: 048
     Dates: start: 1993

REACTIONS (9)
  - Surgery [Unknown]
  - Arthropod bite [None]
  - Diarrhoea [Recovering/Resolving]
  - Staphylococcal infection [Unknown]
  - Deep vein thrombosis [Unknown]
  - Peripheral swelling [Unknown]
  - Fat necrosis [Unknown]
  - Vein collapse [Unknown]
  - Thrombosis [Unknown]

NARRATIVE: CASE EVENT DATE: 1999
